FAERS Safety Report 17827996 (Version 4)
Quarter: 2020Q2

REPORT INFORMATION
  Report Type: Report from Study
  Country: IN (occurrence: IN)
  Receive Date: 20200527
  Receipt Date: 20200623
  Transmission Date: 20200714
  Serious: Yes (Other)
  Sender: FDA-Public Use
  Company Number: NVSC2020IN144013

PATIENT
  Age: 50 Year
  Sex: Male
  Weight: 83 kg

DRUGS (3)
  1. GALVUS MET [Suspect]
     Active Substance: METFORMIN HYDROCHLORIDE\VILDAGLIPTIN
     Indication: DIABETES MELLITUS
     Dosage: 1 DF (METFORMIN 500/VILDAGLIPTIN 50), BID, POST MEAL 1-0-1 SINCE 4 TO 5 YEARS
     Route: 048
  2. AMLODIPINE [Concomitant]
     Active Substance: AMLODIPINE BESYLATE
     Indication: BLOOD PRESSURE ABNORMAL
     Dosage: UNK
     Route: 048
  3. RAMIPRIL. [Concomitant]
     Active Substance: RAMIPRIL
     Indication: PROTEIN URINE PRESENT
     Dosage: UNK
     Route: 048

REACTIONS (19)
  - Gastrointestinal motility disorder [Unknown]
  - Protein urine present [Unknown]
  - Glycosylated haemoglobin increased [Unknown]
  - Blood glucose decreased [Unknown]
  - Obesity [Unknown]
  - Benign prostatic hyperplasia [Unknown]
  - Hypertension [Unknown]
  - Hyperglycaemia [Unknown]
  - Chest pain [Unknown]
  - Blood triglycerides increased [Unknown]
  - Flatulence [Unknown]
  - Microalbuminuria [Unknown]
  - Blood urea increased [Unknown]
  - High density lipoprotein decreased [Unknown]
  - Blood albumin abnormal [Unknown]
  - Discomfort [Unknown]
  - Low density lipoprotein decreased [Unknown]
  - Abdominal distension [Unknown]
  - Hepatic steatosis [Unknown]

NARRATIVE: CASE EVENT DATE: 20190403
